FAERS Safety Report 9018917 (Version 2)
Quarter: 2013Q1

REPORT INFORMATION
  Report Type: Spontaneous
  Country: US (occurrence: US)
  Receive Date: 20130118
  Receipt Date: 20130130
  Transmission Date: 20140127
  Serious: Yes (Death)
  Sender: FDA-Public Use
  Company Number: US-BAXTER-2013BAX002594

PATIENT
  Age: 51 None
  Sex: Female

DRUGS (2)
  1. 0.9% SODIUM CHLORIDE INJECTION [Suspect]
     Indication: HAEMODIALYSIS
     Route: 065
     Dates: start: 2012, end: 20121118
  2. SODIUM CHLORIDE [Suspect]
     Indication: HAEMODIALYSIS
     Route: 065

REACTIONS (1)
  - Death [Fatal]
